FAERS Safety Report 14304593 (Version 1)
Quarter: 2017Q4

REPORT INFORMATION
  Report Type: Spontaneous
  Country: JP (occurrence: JP)
  Receive Date: 20171219
  Receipt Date: 20171219
  Transmission Date: 20180321
  Serious: Yes (Death)
  Sender: FDA-Public Use
  Company Number: JP-OTSUKA-010114

PATIENT
  Age: 41 Year
  Sex: Female

DRUGS (5)
  1. HIRNAMIN [Concomitant]
     Active Substance: PHENOTHIAZINE
     Indication: PRODUCT USED FOR UNKNOWN INDICATION
     Dosage: 50 MG, QD
     Route: 065
     Dates: start: 20090515, end: 20090807
  2. SILECE [Concomitant]
     Active Substance: FLUNITRAZEPAM
     Indication: PRODUCT USED FOR UNKNOWN INDICATION
     Dosage: 4 MG, QD
     Route: 065
     Dates: start: 20090713
  3. CONTOMIN [Concomitant]
     Active Substance: CHLORPROMAZINE
     Indication: PRODUCT USED FOR UNKNOWN INDICATION
     Dosage: 100 MG, QD
     Route: 065
     Dates: start: 20090807
  4. ABILIFY [Suspect]
     Active Substance: ARIPIPRAZOLE
     Indication: SCHIZOPHRENIA
     Dosage: 24 MG, QD
     Route: 048
     Dates: start: 20090413, end: 20090901
  5. RISPERDAL [Concomitant]
     Active Substance: RISPERIDONE
     Indication: PRODUCT USED FOR UNKNOWN INDICATION
     Dosage: 8 MG, QD
     Route: 048
     Dates: start: 20090713

REACTIONS (1)
  - Cardiac failure acute [Fatal]

NARRATIVE: CASE EVENT DATE: 20090924
